FAERS Safety Report 9540471 (Version 10)
Quarter: 2015Q3

REPORT INFORMATION
  Report Type: Report from Study
  Country: MX (occurrence: MX)
  Receive Date: 20130920
  Receipt Date: 20150901
  Transmission Date: 20151125
  Serious: Yes (Death, Life-Threatening, Hospitalization, Other)
  Sender: FDA-Public Use
  Company Number: MX-ABBVIE-12P-107-0980717-00

PATIENT
  Age: 55 Year
  Sex: Female
  Weight: 59 kg

DRUGS (9)
  1. HUMIRA [Suspect]
     Active Substance: ADALIMUMAB
     Indication: RHEUMATOID ARTHRITIS
     Route: 058
     Dates: start: 20120327, end: 20120828
  2. SULINDAC. [Concomitant]
     Active Substance: SULINDAC
     Indication: RHEUMATOID ARTHRITIS
     Dates: start: 20111110, end: 20120825
  3. PARACETAMOL [Concomitant]
     Active Substance: ACETAMINOPHEN
     Dates: start: 20111110, end: 20120326
  4. METHOTREXATE [Concomitant]
     Active Substance: METHOTREXATE
     Indication: RHEUMATOID ARTHRITIS
     Dates: start: 20111010, end: 20120825
  5. FOLIC ACID. [Concomitant]
     Active Substance: FOLIC ACID
     Indication: PROPHYLAXIS
  6. OMEPRAZOL [Concomitant]
     Active Substance: OMEPRAZOLE
     Indication: GASTROOESOPHAGEAL REFLUX DISEASE
     Dates: start: 20091023, end: 20120912
  7. SULINDACO [Concomitant]
     Indication: RHEUMATOID ARTHRITIS
     Dates: start: 20111110, end: 20120326
  8. PARACETAMOL [Concomitant]
     Active Substance: ACETAMINOPHEN
     Indication: RHEUMATOID ARTHRITIS
     Dates: start: 20111110, end: 20120825
  9. FOLIC ACID. [Concomitant]
     Active Substance: FOLIC ACID
     Indication: ENZYME INHIBITION
     Dates: start: 20120327, end: 20120825

REACTIONS (2)
  - Hepatic cirrhosis [Recovered/Resolved]
  - Oesophageal haemorrhage [Fatal]

NARRATIVE: CASE EVENT DATE: 20120810
